FAERS Safety Report 15937111 (Version 1)
Quarter: 2019Q1

REPORT INFORMATION
  Report Type: Other
  Country: UA (occurrence: UA)
  Receive Date: 20190208
  Receipt Date: 20190208
  Transmission Date: 20190417
  Serious: Yes (Death, Hospitalization)
  Sender: FDA-Public Use
  Company Number: UA-INNOGENIX, LLC-2062350

PATIENT
  Age: 12 Day
  Weight: 3.28 kg

DRUGS (4)
  1. METRONIDAZOLE. [Suspect]
     Active Substance: METRONIDAZOLE
     Indication: ANTIBIOTIC PROPHYLAXIS
     Route: 065
  2. AMIKACIN. [Suspect]
     Active Substance: AMIKACIN
  3. FLUCONAZOLE. [Suspect]
     Active Substance: FLUCONAZOLE
  4. ROMENEM (MEROPENEM) [Suspect]
     Active Substance: MEROPENEM

REACTIONS (2)
  - Drug ineffective [Fatal]
  - Multiple organ dysfunction syndrome [Fatal]
